FAERS Safety Report 14112564 (Version 1)
Quarter: 2017Q4

REPORT INFORMATION
  Report Type: Spontaneous
  Country: US (occurrence: US)
  Receive Date: 20171020
  Receipt Date: 20171020
  Transmission Date: 20180321
  Serious: No
  Sender: FDA-Public Use
  Company Number: US-IRONWOOD PHARMACEUTICALS, INC.-IRWD2017004188

PATIENT
  Age: 61 Year
  Sex: Male

DRUGS (2)
  1. ZURAMPIC [Suspect]
     Active Substance: LESINURAD
     Indication: GOUT
     Dosage: 200 MG, QD
     Route: 048
  2. ALLOPURINOL. [Concomitant]
     Active Substance: ALLOPURINOL
     Indication: GOUT
     Dosage: 300 MG, UNK

REACTIONS (1)
  - Diarrhoea [Recovered/Resolved]
